FAERS Safety Report 8321392 (Version 2)
Quarter: 2013Q4

REPORT INFORMATION
  Report Type: Spontaneous
  Country: US (occurrence: US)
  Receive Date: 20120104
  Receipt Date: 20131127
  Transmission Date: 20140711
  Serious: Yes (Other)
  Sender: FDA-Public Use
  Company Number: US-GLAXOSMITHKLINE-A0934728A

PATIENT
  Age: 72 Year
  Sex: Male
  Weight: 86.4 kg

DRUGS (1)
  1. AVANDIA [Suspect]
     Indication: DIABETES MELLITUS
     Route: 048
     Dates: start: 200612, end: 200707

REACTIONS (5)
  - Coronary artery disease [Recovering/Resolving]
  - Cardiac failure congestive [Unknown]
  - Cerebrovascular accident [Unknown]
  - Heart injury [Unknown]
  - Atrioventricular block complete [Unknown]
